FAERS Safety Report 10651915 (Version 1)
Quarter: 2014Q4

REPORT INFORMATION
  Report Type: Spontaneous
  Country: TR (occurrence: None)
  Receive Date: 20141211
  Receipt Date: 20141211
  Transmission Date: 20150529
  Serious: Yes (Life-Threatening, Hospitalization, Other)
  Sender: FDA-Public Use
  Company Number: 2014EPC00007

PATIENT
  Age: 43 Year
  Sex: Male

DRUGS (1)
  1. AMLODIPINE [Suspect]
     Active Substance: AMLODIPINE BESYLATE
     Route: 048

REACTIONS (8)
  - Hypotension [None]
  - Acute kidney injury [None]
  - Shock [None]
  - Sinus tachycardia [None]
  - Suicide attempt [None]
  - Hypocapnia [None]
  - Pulmonary oedema [None]
  - Intentional overdose [None]
